FAERS Safety Report 24818035 (Version 1)
Quarter: 2025Q1

REPORT INFORMATION
  Report Type: Spontaneous
  Country: US (occurrence: US)
  Receive Date: 20250108
  Receipt Date: 20250108
  Transmission Date: 20250408
  Serious: Yes (Death, Other)
  Sender: BRISTOL-MYERS SQUIBB COMPANY
  Company Number: US-BRISTOL-MYERS SQUIBB COMPANY-2025-002045

PATIENT
  Age: 73 Year
  Sex: Male

DRUGS (1)
  1. POMALYST [Suspect]
     Active Substance: POMALIDOMIDE
     Indication: Plasma cell myeloma
     Dosage: DOSE/FREQUENCY: TAKE 1 CAPSULE (1 MG TOTAL) BY MOUTH DAILY ON DAYS 1 TO 21 OF EACH 28-DAY CYCLE
     Route: 048
     Dates: start: 202412

REACTIONS (1)
  - Death [Fatal]
